FAERS Safety Report 5923083-6 (Version None)
Quarter: 2008Q4

REPORT INFORMATION
  Report Type: 
  Country: None (occurrence: None)
  Receive Date: 20081018
  Receipt Date: 20081006
  Transmission Date: 20090506
  Serious: Yes (Hospitalization, Other)
  Sender: FDA-Public Use
  Company Number: US-PFIZER INC-2008085059

PATIENT
  Sex: Female
  Weight: 52.2 kg

DRUGS (4)
  1. CHANTIX [Suspect]
     Indication: SMOKING CESSATION THERAPY
     Route: 048
     Dates: start: 20080101, end: 20081001
  2. OXYCONTIN [Concomitant]
  3. PERCOCET [Concomitant]
  4. AMBIEN [Concomitant]

REACTIONS (2)
  - METAMORPHOPSIA [None]
  - THINKING ABNORMAL [None]
